FAERS Safety Report 9210686 (Version 1)
Quarter: 2013Q2

REPORT INFORMATION
  Report Type: Spontaneous
  Country: CA (occurrence: CA)
  Receive Date: 20130404
  Receipt Date: 20130404
  Transmission Date: 20140414
  Serious: Yes (Other)
  Sender: FDA-Public Use
  Company Number: CA-GLAXOSMITHKLINE-A1014088A

PATIENT
  Age: 61 Year
  Sex: Male
  Weight: 140 kg

DRUGS (3)
  1. ADVAIR [Suspect]
     Indication: ASTHMA
     Dosage: 1PUFF TWICE PER DAY
     Route: 055
     Dates: start: 20130226, end: 20130227
  2. VENTOLIN [Concomitant]
  3. FLOVENT [Concomitant]

REACTIONS (11)
  - Dyspnoea exertional [Recovered/Resolved]
  - Feeling abnormal [Recovered/Resolved]
  - Insomnia [Recovered/Resolved]
  - Hot flush [Recovered/Resolved]
  - Dyspnoea [Unknown]
  - Restlessness [Unknown]
  - Tension [Unknown]
  - Feeling hot [Unknown]
  - Discomfort [Unknown]
  - Lung disorder [Unknown]
  - Unevaluable event [Unknown]
